FAERS Safety Report 7615790-4 (Version None)
Quarter: 2011Q3

REPORT INFORMATION
  Report Type: 
  Country: None (occurrence: None)
  Receive Date: 20110715
  Receipt Date: 20110715
  Transmission Date: 20111222
  Serious: Yes (Hospitalization)
  Sender: FDA-Public Use
  Company Number: None

PATIENT
  Age: 91 Year
  Sex: Male
  Weight: 46.9 kg

DRUGS (1)
  1. ARIPIPRAZOLE [Suspect]
     Indication: AGITATION
     Dosage: 2.5MG EVERY DAY PO
     Route: 048
     Dates: start: 20110518, end: 20110602

REACTIONS (2)
  - HALLUCINATION [None]
  - AGITATION [None]
